FAERS Safety Report 12414953 (Version 1)
Quarter: 2016Q2

REPORT INFORMATION
  Report Type: Spontaneous
  Country: US (occurrence: US)
  Receive Date: 20160530
  Receipt Date: 20160530
  Transmission Date: 20160815
  Serious: No
  Sender: FDA-Public Use
  Company Number: US-AMGEN-USASP2016066668

PATIENT
  Age: 34 Year
  Sex: Female

DRUGS (2)
  1. VITAMINE D [Concomitant]
     Dosage: UNK
     Route: 065
  2. ENBREL [Suspect]
     Active Substance: ETANERCEPT
     Indication: RHEUMATOID ARTHRITIS
     Dosage: 50 MG, QWK
     Route: 058
     Dates: start: 20160428

REACTIONS (1)
  - Headache [Unknown]

NARRATIVE: CASE EVENT DATE: 201605
